FAERS Safety Report 14233191 (Version 1)
Quarter: 2017Q4

REPORT INFORMATION
  Report Type: Report from Study
  Country: CA (occurrence: CA)
  Receive Date: 20171128
  Receipt Date: 20171128
  Transmission Date: 20180321
  Serious: Yes (Death, Hospitalization)
  Sender: FDA-Public Use
  Company Number: CA-ACTELION-A-US2017-162974

PATIENT
  Age: 79 Year
  Sex: Male

DRUGS (10)
  1. TRACLEER [Suspect]
     Active Substance: BOSENTAN
     Indication: PULMONARY ARTERIAL HYPERTENSION
     Dosage: 125 MG, UNK
     Route: 048
     Dates: start: 20151108
  2. SPIRONOLACTONE. [Concomitant]
     Active Substance: SPIRONOLACTONE
  3. FUROSEMIDE. [Concomitant]
     Active Substance: FUROSEMIDE
  4. CRESTOR [Concomitant]
     Active Substance: ROSUVASTATIN CALCIUM
  5. WARFARIN [Concomitant]
     Active Substance: WARFARIN
  6. ATENOLOL. [Concomitant]
     Active Substance: ATENOLOL
  7. SYNTHROID [Concomitant]
     Active Substance: LEVOTHYROXINE SODIUM
  8. FOLIC ACID. [Concomitant]
     Active Substance: FOLIC ACID
  9. CIPRALEX [Concomitant]
     Active Substance: ESCITALOPRAM OXALATE
  10. ADCIRCA [Concomitant]
     Active Substance: TADALAFIL

REACTIONS (2)
  - Pulmonary hypertension [Fatal]
  - Disease progression [Fatal]
